FAERS Safety Report 8600344 (Version 5)
Quarter: 2014Q2

REPORT INFORMATION
  Report Type: Spontaneous
  Country: US (occurrence: US)
  Receive Date: 20120606
  Receipt Date: 20140402
  Transmission Date: 20141212
  Serious: Yes (Disabling)
  Sender: FDA-Public Use
  Company Number: US-ASTRAZENECA-2012SE35518

PATIENT
  Age: 42 Year
  Sex: Male
  Weight: 68.9 kg

DRUGS (26)
  1. NEXIUM [Suspect]
     Indication: GASTROOESOPHAGEAL REFLUX DISEASE
     Route: 048
  2. NEXIUM [Suspect]
     Indication: GASTROOESOPHAGEAL REFLUX DISEASE
     Route: 048
  3. NEXIUM [Suspect]
     Indication: DYSPEPSIA
     Route: 048
  4. NEXIUM [Suspect]
     Indication: GASTROOESOPHAGEAL REFLUX DISEASE
     Route: 048
     Dates: start: 20070503
  5. NEXIUM [Suspect]
     Indication: GASTROOESOPHAGEAL REFLUX DISEASE
     Route: 048
     Dates: start: 20070503
  6. NEXIUM [Suspect]
     Indication: DYSPEPSIA
     Route: 048
     Dates: start: 20070503
  7. PRILOSEC [Suspect]
     Indication: GASTROOESOPHAGEAL REFLUX DISEASE
     Route: 048
  8. PRILOSEC [Suspect]
     Indication: DYSPEPSIA
     Route: 048
  9. PREVACID [Concomitant]
     Indication: GASTROOESOPHAGEAL REFLUX DISEASE
  10. PREVACID [Concomitant]
     Indication: DYSPEPSIA
  11. PROTONIX [Concomitant]
     Indication: GASTROOESOPHAGEAL REFLUX DISEASE
  12. PROTONIX [Concomitant]
     Indication: DYSPEPSIA
  13. TAGAMET [Concomitant]
  14. ZANTAC [Concomitant]
  15. PEPTO BISMOL [Concomitant]
  16. MYLANTA [Concomitant]
  17. TYLENOL [Concomitant]
  18. EXCEDRIN [Concomitant]
  19. BUSPIRONE HCL [Concomitant]
  20. TIZANIDINE HCL [Concomitant]
  21. CYMBALTA [Concomitant]
  22. TRAMADOL [Concomitant]
  23. PREDNISONE [Concomitant]
  24. ATENOLOL [Concomitant]
     Dates: start: 20130624
  25. ATORVASTATIN [Concomitant]
  26. SEROQUEL [Concomitant]
     Dates: start: 20120127

REACTIONS (9)
  - Crohn^s disease [Unknown]
  - Osteoporosis [Unknown]
  - Multiple fractures [Unknown]
  - Arthritis [Unknown]
  - Atrophy [Unknown]
  - Calcium deficiency [Unknown]
  - Vitamin D deficiency [Unknown]
  - Back disorder [Unknown]
  - Depression [Unknown]
